FAERS Safety Report 4393204-8 (Version None)
Quarter: 2004Q3

REPORT INFORMATION
  Report Type: 
  Country: None (occurrence: None)
  Receive Date: 20040702
  Receipt Date: 20040618
  Transmission Date: 20050211
  Serious: Yes (Hospitalization)
  Sender: FDA-Public Use
  Company Number: JP-JNJFOC-20040602223

PATIENT
  Age: 78 Year
  Sex: Male

DRUGS (7)
  1. OXYBUTYNIN GENERIC (OXYBUTYNIN HYDROCHLORIDE) TABLETS [Suspect]
     Indication: POLLAKIURIA
     Dosage: SEE IMAGE
     Route: 048
     Dates: start: 20040409, end: 20040506
  2. OXYBUTYNIN GENERIC (OXYBUTYNIN HYDROCHLORIDE) TABLETS [Suspect]
     Indication: URINARY INCONTINENCE
     Dosage: SEE IMAGE
     Route: 048
     Dates: start: 20040409, end: 20040506
  3. OXYBUTYNIN GENERIC (OXYBUTYNIN HYDROCHLORIDE) TABLETS [Suspect]
     Indication: POLLAKIURIA
     Dosage: SEE IMAGE
     Route: 048
     Dates: start: 20040507, end: 20040520
  4. OXYBUTYNIN GENERIC (OXYBUTYNIN HYDROCHLORIDE) TABLETS [Suspect]
     Indication: URINARY INCONTINENCE
     Dosage: SEE IMAGE
     Route: 048
     Dates: start: 20040507, end: 20040520
  5. AMLODIPINE BESYLATE [Concomitant]
  6. METHYCOBAL (MECOBALAMIN) [Concomitant]
  7. TOCOPHERYL NICOTINATE (TOCOPHERYL NICOTINATE) [Concomitant]

REACTIONS (18)
  - ALANINE AMINOTRANSFERASE INCREASED [None]
  - ANOREXIA [None]
  - ASPARTATE AMINOTRANSFERASE INCREASED [None]
  - BACK PAIN [None]
  - BLOOD ALKALINE PHOSPHATASE INCREASED [None]
  - BLOOD UREA INCREASED [None]
  - C-REACTIVE PROTEIN INCREASED [None]
  - CONSTIPATION [None]
  - DEHYDRATION [None]
  - ENTEROBACTER INFECTION [None]
  - FATIGUE [None]
  - HEPATIC FUNCTION ABNORMAL [None]
  - HYPERTENSION [None]
  - OLIGURIA [None]
  - PYREXIA [None]
  - RENAL IMPAIRMENT [None]
  - URINARY TRACT INFECTION [None]
  - WEIGHT DECREASED [None]
